FAERS Safety Report 16821723 (Version 1)
Quarter: 2019Q4

REPORT INFORMATION
  Report Type: Spontaneous
  Country: US (occurrence: US)
  Receive Date: 20190917
  Receipt Date: 20190917
  Transmission Date: 20200122
  Serious: Yes (Hospitalization, Disabling)
  Sender: FDA-Public Use
  Company Number: None

PATIENT
  Age: 51 Year
  Sex: Female
  Weight: 49.5 kg

DRUGS (10)
  1. BOTOX [Concomitant]
     Active Substance: ONABOTULINUMTOXINA
  2. LARIN [Concomitant]
  3. AJOVY [Suspect]
     Active Substance: FREMANEZUMAB-VFRM
     Indication: MIGRAINE
     Dosage: ?          OTHER FREQUENCY:ONCE PER MONTH;?
     Route: 058
     Dates: start: 20181211, end: 20190822
  4. VITAMIN B12 [Concomitant]
     Active Substance: CYANOCOBALAMIN
  5. IBUPROFEN. [Concomitant]
     Active Substance: IBUPROFEN
  6. RELPAX [Concomitant]
     Active Substance: ELETRIPTAN HYDROBROMIDE
  7. D.H.E. 45 [Concomitant]
     Active Substance: DIHYDROERGOTAMINE MESYLATE
  8. GABAPENTIN. [Concomitant]
     Active Substance: GABAPENTIN
  9. MAGNESIUM [Concomitant]
     Active Substance: MAGNESIUM
  10. COQ10 [Concomitant]
     Active Substance: UBIDECARENONE

REACTIONS (4)
  - Gait inability [None]
  - Myalgia [None]
  - Hypokinesia [None]
  - Pain in extremity [None]

NARRATIVE: CASE EVENT DATE: 20190822
